FAERS Safety Report 5120418-1 (Version None)
Quarter: 2006Q4

REPORT INFORMATION
  Report Type: 
  Country: None (occurrence: None)
  Receive Date: 20061004
  Receipt Date: 20060927
  Transmission Date: 20070319
  Serious: Yes (Hospitalization)
  Sender: FDA-Public Use
  Company Number: JP-GLAXOSMITHKLINE-B0440388A

PATIENT
  Age: 42 Year
  Sex: Male

DRUGS (6)
  1. EPIVIR [Suspect]
     Indication: HIV INFECTION
     Dosage: 300MG PER DAY
     Route: 048
     Dates: start: 19970314, end: 20051025
  2. ZERIT [Suspect]
     Indication: HIV INFECTION
     Route: 048
     Dates: start: 19951113, end: 20051025
  3. INVIRASE [Suspect]
     Indication: HIV INFECTION
     Dosage: 1800MG PER DAY
     Route: 048
     Dates: start: 19970417, end: 20051025
  4. URSO [Concomitant]
     Indication: HEPATITIS C
     Dosage: 200MG THREE TIMES PER DAY
     Route: 048
     Dates: start: 20050401
  5. UNSPECIFIED DRUG [Concomitant]
     Indication: FACTOR VIII DEFICIENCY
     Route: 042
     Dates: start: 20050401
  6. NEO-MINOPHAGEN C [Concomitant]
     Indication: HEPATITIS C
     Route: 042
     Dates: start: 20050401

REACTIONS (5)
  - DISSEMINATED INTRAVASCULAR COAGULATION [None]
  - LACTIC ACIDOSIS [None]
  - RENAL FAILURE [None]
  - SEPSIS [None]
  - SEPTIC SHOCK [None]
